FAERS Safety Report 4596575-2 (Version None)
Quarter: 2005Q1

REPORT INFORMATION
  Report Type: 
  Country: None (occurrence: None)
  Receive Date: 20050228
  Receipt Date: 20050214
  Transmission Date: 20050727
  Serious: Yes (Hospitalization)
  Sender: FDA-Public Use
  Company Number: 2005021248

PATIENT
  Age: 80 Year
  Sex: Female
  Weight: 70.3075 kg

DRUGS (5)
  1. DETROL LA [Suspect]
     Indication: HYPERTONIC BLADDER
     Dosage: 4 MG (4 MG, QD), ORAL
     Route: 048
  2. LEVOTHYROXINE SODIUM [Concomitant]
  3. VALSARTAN (VALSARTAN) [Concomitant]
  4. CLOPIDOGREL BISULFATE [Concomitant]
  5. ASPIRIN [Concomitant]

REACTIONS (7)
  - DIZZINESS POSTURAL [None]
  - DRUG EFFECT DECREASED [None]
  - HYPERTENSION [None]
  - KIDNEY INFECTION [None]
  - NOCTURIA [None]
  - URINARY TRACT INFECTION [None]
  - VISUAL DISTURBANCE [None]
